FAERS Safety Report 4486343-4 (Version None)
Quarter: 2004Q4

REPORT INFORMATION
  Report Type: 
  Country: None (occurrence: None)
  Receive Date: 20041022
  Receipt Date: 20041007
  Transmission Date: 20050328
  Serious: Yes (Death)
  Sender: FDA-Public Use
  Company Number: 2004S1003023

PATIENT
  Age: 71 Year
  Sex: Female

DRUGS (2)
  1. CLOZAPINE [Suspect]
     Indication: SCHIZOPHRENIA
     Dosage: 75MG BID ORAL
     Route: 048
     Dates: start: 20010601, end: 20040901
  2. CLOZAPINE [Suspect]
     Indication: SCHIZOPHRENIA
     Dosage: 100MG BID ORAL
     Route: 048
     Dates: start: 20010601, end: 20040901

REACTIONS (2)
  - PULMONARY EMBOLISM [None]
  - THROMBOSIS [None]
